FAERS Safety Report 24105399 (Version 1)
Quarter: 2024Q3

REPORT INFORMATION
  Report Type: Spontaneous
  Country: RU (occurrence: RU)
  Receive Date: 20240717
  Receipt Date: 20240717
  Transmission Date: 20241016
  Serious: Yes (Other)
  Sender: EMD SERONO INC
  Company Number: RU-Merck Healthcare KGaA-2024037230

PATIENT
  Age: 69 Year
  Sex: Male

DRUGS (1)
  1. BAVENCIO [Suspect]
     Active Substance: AVELUMAB
     Indication: Transitional cell carcinoma metastatic
     Route: 041
     Dates: start: 20220916

REACTIONS (5)
  - Chronic kidney disease [Unknown]
  - Nephropathy toxic [Unknown]
  - Cystitis radiation [Unknown]
  - Respiratory tract infection viral [Unknown]
  - Disease progression [Unknown]
